FAERS Safety Report 7366244-4 (Version None)
Quarter: 2011Q1

REPORT INFORMATION
  Report Type: 
  Country: None (occurrence: None)
  Receive Date: 20110322
  Receipt Date: 20110217
  Transmission Date: 20110831
  Serious: Yes (Hospitalization)
  Sender: FDA-Public Use
  Company Number: JP-BAYER-2011-001869

PATIENT
  Age: 62 Year
  Sex: Male
  Weight: 44 kg

DRUGS (2)
  1. NEXAVAR [Suspect]
     Indication: HEPATIC NEOPLASM MALIGNANT
     Dosage: DAILY DOSE 400 MG
     Route: 048
     Dates: start: 20101213, end: 20101228
  2. URSO 250 [Concomitant]
     Dosage: DAILY DOSE 600 MG
     Route: 048

REACTIONS (1)
  - STEVENS-JOHNSON SYNDROME [None]
